FAERS Safety Report 10339662 (Version 1)
Quarter: 2014Q3

REPORT INFORMATION
  Report Type: Spontaneous
  Country: US (occurrence: None)
  Receive Date: 20140723
  Receipt Date: 20140723
  Transmission Date: 20150326
  Serious: Yes (Hospitalization)
  Sender: FDA-Public Use
  Company Number: None

PATIENT
  Age: 70 Year
  Sex: Female
  Weight: 54.7 kg

DRUGS (11)
  1. ADVAIR DISKUS [Concomitant]
     Active Substance: FLUTICASONE PROPIONATE\SALMETEROL XINAFOATE
  2. OXYCODONE [Concomitant]
     Active Substance: OXYCODONE
  3. SYNTHROID [Concomitant]
     Active Substance: LEVOTHYROXINE SODIUM
  4. TAXOL [Suspect]
     Active Substance: PACLITAXEL
     Dates: end: 20110331
  5. ASPRIN [Concomitant]
     Active Substance: ASPIRIN
  6. CARBOPLATIN. [Suspect]
     Active Substance: CARBOPLATIN
     Dates: end: 20110324
  7. BONIVA [Concomitant]
     Active Substance: IBANDRONATE SODIUM
  8. CALCIUM [Concomitant]
     Active Substance: CALCIUM
  9. DIOVAN/HCT 80/125 [Concomitant]
  10. MULTIVITAMIN [Concomitant]
     Active Substance: VITAMINS
  11. VITAMIN C [Concomitant]
     Active Substance: ASCORBIC ACID

REACTIONS (3)
  - Pyrexia [None]
  - Vulvovaginal adhesion [None]
  - Vaginal discharge [None]

NARRATIVE: CASE EVENT DATE: 20110406
